FAERS Safety Report 8487714-1 (Version None)
Quarter: 2012Q2

REPORT INFORMATION
  Report Type: 
  Country: None (occurrence: None)
  Receive Date: 20120402
  Receipt Date: 20100325
  Transmission Date: 20120825
  Serious: Yes (Other)
  Sender: FDA-Public Use
  Company Number: PHHY2010US18795

PATIENT
  Age: 73 Year
  Sex: Female

DRUGS (9)
  1. PROZAC [Suspect]
  2. ZOLOFT [Suspect]
  3. ATENOLOL [Concomitant]
  4. PREMARIN [Concomitant]
  5. EXFORGE [Suspect]
     Dosage: 5/120 MG
  6. ESCITALOPRAM [Suspect]
  7. PENICILLIN [Suspect]
  8. SULFAMETHOXAZOLE [Suspect]
  9. ASPIRIN [Concomitant]

REACTIONS (13)
  - HYPERHIDROSIS [None]
  - ASTHENIA [None]
  - FATIGUE [None]
  - DYSPNOEA [None]
  - DIZZINESS [None]
  - PALPITATIONS [None]
  - PAIN IN EXTREMITY [None]
  - DEPRESSION [None]
  - MYOCARDIAL DEPRESSION [None]
  - ANXIETY [None]
  - CHEST PAIN [None]
  - BURNING SENSATION [None]
  - RASH [None]
